FAERS Safety Report 15627844 (Version 2)
Quarter: 2018Q4

REPORT INFORMATION
  Report Type: Spontaneous
  Country: BR (occurrence: BR)
  Receive Date: 20181116
  Receipt Date: 20181120
  Transmission Date: 20190205
  Serious: Yes (Hospitalization)
  Sender: FDA-Public Use
  Company Number: BR-B.I. PHARMACEUTICALS,INC./RIDGEFIELD-2018-BI-055276

PATIENT
  Age: 20 Year
  Sex: Female
  Weight: 60 kg

DRUGS (13)
  1. ATROVENT [Suspect]
     Active Substance: IPRATROPIUM BROMIDE
     Indication: SINUSITIS
     Route: 055
     Dates: start: 20181109, end: 20181109
  2. AZITROMICINA [Concomitant]
     Active Substance: AZITHROMYCIN DIHYDRATE
     Indication: SINUSITIS
     Route: 065
     Dates: start: 201811, end: 201811
  3. ATROVENT [Suspect]
     Active Substance: IPRATROPIUM BROMIDE
     Indication: CATARRH
  4. CLOBAZAM. [Concomitant]
     Active Substance: CLOBAZAM
     Indication: PRODUCT USED FOR UNKNOWN INDICATION
     Dosage: DOSE: 10 MG
     Route: 065
  5. TOPIRAMATO [Concomitant]
     Active Substance: TOPIRAMATE
     Indication: PRODUCT USED FOR UNKNOWN INDICATION
     Route: 065
  6. BEROTEC [Suspect]
     Active Substance: FENOTEROL HYDROBROMIDE
     Indication: CATARRH
  7. PREDNISONA [Concomitant]
     Active Substance: PREDNISONE
     Indication: SINUSITIS
     Route: 065
     Dates: start: 201811, end: 201811
  8. SALINE [Suspect]
     Active Substance: SODIUM CHLORIDE
     Indication: SINUSITIS
     Route: 055
     Dates: start: 20181109, end: 20181109
  9. PREDNISONA [Concomitant]
     Active Substance: PREDNISONE
     Indication: CATARRH
  10. DEPAKOTE [Concomitant]
     Active Substance: DIVALPROEX SODIUM
     Indication: PRODUCT USED FOR UNKNOWN INDICATION
     Route: 065
  11. BEROTEC [Suspect]
     Active Substance: FENOTEROL HYDROBROMIDE
     Indication: SINUSITIS
     Route: 055
     Dates: start: 20181109, end: 20181109
  12. SALINE [Suspect]
     Active Substance: SODIUM CHLORIDE
     Indication: CATARRH
     Dates: start: 20181107, end: 20181108
  13. AZITROMICINA [Concomitant]
     Active Substance: AZITHROMYCIN DIHYDRATE
     Indication: CATARRH

REACTIONS (6)
  - Blood pressure decreased [Unknown]
  - Oxygen saturation decreased [Not Recovered/Not Resolved]
  - Pneumonia aspiration [Not Recovered/Not Resolved]
  - Fatigue [Unknown]
  - Product use in unapproved indication [Recovered/Resolved]
  - Dyspnoea [Unknown]

NARRATIVE: CASE EVENT DATE: 20181108
